FAERS Safety Report 5122510-4 (Version None)
Quarter: 2006Q4

REPORT INFORMATION
  Report Type: 
  Country: None (occurrence: None)
  Receive Date: 20061004
  Receipt Date: 20060920
  Transmission Date: 20070319
  Serious: Yes (Hospitalization)
  Sender: FDA-Public Use
  Company Number: 2006PV020454

PATIENT
  Age: 65 Year
  Sex: Female
  Weight: 95.2554 kg

DRUGS (5)
  1. BYETTA [Suspect]
     Indication: DIABETES MELLITUS NON-INSULIN-DEPENDENT
     Dosage: 10 MCG; BID; SC; 5 MCG; BID; SC
     Route: 058
     Dates: start: 20060613, end: 20060801
  2. BYETTA [Suspect]
     Indication: DIABETES MELLITUS NON-INSULIN-DEPENDENT
     Dosage: 10 MCG; BID; SC; 5 MCG; BID; SC
     Route: 058
     Dates: start: 20060801, end: 20060828
  3. GLUCOPHAGE [Concomitant]
  4. ATENOLOL [Concomitant]
  5. GLIPIZIDE [Concomitant]

REACTIONS (11)
  - CONDITION AGGRAVATED [None]
  - DYSPNOEA [None]
  - HEART RATE IRREGULAR [None]
  - INJECTION SITE ERYTHEMA [None]
  - INJECTION SITE HYPERSENSITIVITY [None]
  - INJECTION SITE IRRITATION [None]
  - INJECTION SITE NODULE [None]
  - INJECTION SITE PRURITUS [None]
  - NAUSEA [None]
  - SKIN IRRITATION [None]
  - WEIGHT DECREASED [None]
